FAERS Safety Report 22347071 (Version 1)
Quarter: 2023Q2

REPORT INFORMATION
  Report Type: Spontaneous
  Country: CA (occurrence: CA)
  Receive Date: 20230520
  Receipt Date: 20230520
  Transmission Date: 20230721
  Serious: Yes (Hospitalization)
  Sender: FDA-Public Use
  Company Number: CA-002147023-NVSC2023CA114658

PATIENT
  Age: 52 Year
  Sex: Female
  Weight: 48.98 kg

DRUGS (1)
  1. CIPROFLOXACIN [Suspect]
     Active Substance: CIPROFLOXACIN
     Indication: Urinary tract infection
     Dosage: 500.0 MG, BID (2 EVERY 1 DAYS)
     Route: 048

REACTIONS (2)
  - Hallucination, visual [Recovered/Resolved]
  - Insomnia [Recovered/Resolved]
